FAERS Safety Report 9733203 (Version 1)
Quarter: 2013Q4

REPORT INFORMATION
  Report Type: Spontaneous
  Country: US (occurrence: None)
  Receive Date: 20131204
  Receipt Date: 20131204
  Transmission Date: 20140711
  Serious: Yes (Hospitalization, Disabling)
  Sender: FDA-Public Use
  Company Number: None

PATIENT
  Age: 24 Year
  Sex: Female
  Weight: 93 kg

DRUGS (2)
  1. NUVARING [Suspect]
     Indication: CONTRACEPTION
     Route: 067
     Dates: end: 20131022
  2. NUVARING [Suspect]
     Indication: MENSTRUAL DISORDER
     Route: 067
     Dates: end: 20131022

REACTIONS (2)
  - Cerebrovascular accident [None]
  - Cerebral thrombosis [None]
